FAERS Safety Report 4557277-1 (Version None)
Quarter: 2005Q1

REPORT INFORMATION
  Report Type: 
  Country: None (occurrence: None)
  Receive Date: 20050118
  Receipt Date: 20050103
  Transmission Date: 20050727
  Serious: Yes (Hospitalization)
  Sender: FDA-Public Use
  Company Number: 2005CG00029

PATIENT
  Age: 73 Year
  Sex: Female

DRUGS (7)
  1. OMEPRAZOLE [Suspect]
     Indication: OESOPHAGITIS
  2. INSULIN [Suspect]
     Indication: DIABETES MELLITUS
  3. TRACLEER [Suspect]
     Indication: PULMONARY HYPERTENSION
     Dosage: 62.5 MG BID PO
     Route: 048
     Dates: start: 20021213, end: 20030110
  4. TRACLEER [Suspect]
     Indication: PULMONARY HYPERTENSION
     Dosage: 125 MG BID PO
     Route: 048
     Dates: start: 20030110
  5. PREVISCAN [Suspect]
     Indication: PHLEBOTHROMBOSIS
  6. LASILIX [Suspect]
     Indication: OEDEMA
  7. RAMIPRIL [Suspect]
     Indication: ESSENTIAL HYPERTENSION

REACTIONS (2)
  - MICROCYTIC ANAEMIA [None]
  - PULMONARY HYPERTENSION [None]
